FAERS Safety Report 9858816 (Version 1)
Quarter: 2014Q1

REPORT INFORMATION
  Report Type: Spontaneous
  Country: US (occurrence: None)
  Receive Date: 20140113
  Receipt Date: 20140113
  Transmission Date: 20141002
  Serious: Yes (Hospitalization)
  Sender: FDA-Public Use
  Company Number: 45742

PATIENT
  Age: 50 Year
  Sex: Female
  Weight: 99.34 kg

DRUGS (4)
  1. GLASSIA [Suspect]
     Indication: ALPHA-1 ANTI-TRYPSIN DEFICIENCY
     Route: 042
     Dates: start: 20130719
  2. METFORMIN [Concomitant]
  3. ADVAIR DISKUS [Concomitant]
  4. ALBUTEROL NEBULIZER [Concomitant]

REACTIONS (2)
  - Pneumonia [None]
  - Pain [None]
